FAERS Safety Report 9752568 (Version 1)
Quarter: 2013Q4

REPORT INFORMATION
  Report Type: Report from Study
  Country: US (occurrence: US)
  Receive Date: 20131213
  Receipt Date: 20131213
  Transmission Date: 20140711
  Serious: Yes (Hospitalization)
  Sender: FDA-Public Use
  Company Number: US-ROCHE-1317016

PATIENT
  Age: 56 Year
  Sex: Male

DRUGS (4)
  1. PEGASYS [Suspect]
     Indication: CHRONIC HEPATITIS C
     Route: 065
  2. RIBAVIRIN [Suspect]
     Indication: CHRONIC HEPATITIS C
     Route: 065
  3. TELAPREVIR [Suspect]
     Indication: CHRONIC HEPATITIS C
     Route: 065
  4. TELAPREVIR [Suspect]
     Route: 065

REACTIONS (2)
  - Haematemesis [Unknown]
  - Melaena [Unknown]
